FAERS Safety Report 6736116-4 (Version None)
Quarter: 2010Q2

REPORT INFORMATION
  Report Type: 
  Country: None (occurrence: None)
  Receive Date: 20100521
  Receipt Date: 20100511
  Transmission Date: 20101027
  Serious: Yes (Hospitalization)
  Sender: FDA-Public Use
  Company Number: JP-PFIZER INC-2008156377

PATIENT
  Age: 10 Year
  Sex: Male
  Weight: 28 kg

DRUGS (6)
  1. SOMATROPIN [Suspect]
     Indication: HYPOPITUITARISM
     Dosage: 0.8 MG, 1X/DAY
     Route: 058
     Dates: start: 20030806, end: 20041114
  2. SOMATROPIN [Suspect]
     Dosage: 4.8 MG, 6 TIMES/WEEK
     Route: 058
     Dates: start: 20041115, end: 20051211
  3. SOMATROPIN [Suspect]
     Dosage: 5.6 MG, 7  TIMES/WEEK
     Route: 058
     Dates: start: 20051212
  4. CORTRIL [Concomitant]
     Indication: SECONDARY ADRENOCORTICAL INSUFFICIENCY
     Dosage: 15 MG, 1X/DAY
     Route: 048
     Dates: start: 20070906
  5. THYRADIN S [Concomitant]
     Indication: SECONDARY HYPOTHYROIDISM
     Dosage: 100 UG, 1X/DAY
     Route: 048
     Dates: start: 20041213
  6. THYRADIN S [Concomitant]
     Dosage: 125 UG, 1X/DAY
     Route: 048
     Dates: start: 20070906

REACTIONS (2)
  - CONDITION AGGRAVATED [None]
  - CRANIOPHARYNGIOMA [None]
